FAERS Safety Report 6145015-0 (Version None)
Quarter: 2009Q2

REPORT INFORMATION
  Report Type: 
  Country: None (occurrence: None)
  Receive Date: 20090402
  Receipt Date: 20090402
  Transmission Date: 20091009
  Serious: Yes (Other)
  Sender: FDA-Public Use
  Company Number: None

PATIENT
  Age: 47 Year
  Sex: Male
  Weight: 127.0072 kg

DRUGS (3)
  1. SIMVASTATIN [Suspect]
     Indication: ARTHRITIS
     Dosage: 1/2 TAB BY MOUTH AT NIGHTTIME 1/2 TAB PER DAY PO
     Route: 048
     Dates: start: 20090217, end: 20090330
  2. SIMVASTATIN [Suspect]
     Indication: FATIGUE
     Dosage: 1/2 TAB BY MOUTH AT NIGHTTIME 1/2 TAB PER DAY PO
     Route: 048
     Dates: start: 20090217, end: 20090330
  3. SIMVASTATIN [Suspect]
     Indication: MYALGIA
     Dosage: 1/2 TAB BY MOUTH AT NIGHTTIME 1/2 TAB PER DAY PO
     Route: 048
     Dates: start: 20090217, end: 20090330

REACTIONS (3)
  - ARTHRITIS [None]
  - FATIGUE [None]
  - MYALGIA [None]
